FAERS Safety Report 14621186 (Version 1)
Quarter: 2018Q1

REPORT INFORMATION
  Report Type: Spontaneous
  Country: PT (occurrence: PT)
  Receive Date: 20180310
  Receipt Date: 20180310
  Transmission Date: 20180509
  Serious: Yes (Hospitalization, Other)
  Sender: FDA-Public Use
  Company Number: PT-AUROBINDO-AUR-APL-2018-013065

PATIENT
  Age: 81 Year
  Sex: Male

DRUGS (1)
  1. ROPIVACAINE [Suspect]
     Active Substance: ROPIVACAINE
     Indication: INFILTRATION ANAESTHESIA
     Dosage: 150 MILLIGRAM

REACTIONS (2)
  - Generalised tonic-clonic seizure [Recovered/Resolved]
  - Supraventricular tachycardia [Recovered/Resolved]
